FAERS Safety Report 5346434-2 (Version None)
Quarter: 2007Q2

REPORT INFORMATION
  Report Type: 
  Country: None (occurrence: None)
  Receive Date: 20070426
  Receipt Date: 20060809
  Transmission Date: 20071010
  Serious: Yes (Hospitalization, Other)
  Sender: FDA-Public Use
  Company Number: US-JNJFOC-20060800840

PATIENT
  Sex: Male

DRUGS (3)
  1. ULTRAM [Suspect]
     Indication: DRUG USE FOR UNKNOWN INDICATION
  2. ANTI-DEPRESSANT (ANTIDEPRESSANTS) [Concomitant]
  3. ANTI-ANXIETY (ANXIOLYTICS) [Concomitant]

REACTIONS (2)
  - CONVULSION [None]
  - DRUG ABUSER [None]
